FAERS Safety Report 8914661 (Version 1)
Quarter: 2012Q4

REPORT INFORMATION
  Report Type: Report from Study
  Country: JP (occurrence: JP)
  Receive Date: 20121119
  Receipt Date: 20121119
  Transmission Date: 20130627
  Serious: Yes (Hospitalization, Other)
  Sender: FDA-Public Use
  Company Number: JP-NOVOPROD-363740

PATIENT
  Age: 73 Year
  Sex: Male
  Weight: 62 kg

DRUGS (5)
  1. LIRAGLUTIDE FLEXPEN [Suspect]
     Indication: TYPE 2 DIABETES MELLITUS
     Dosage: 0.3 mg, morning
     Route: 058
     Dates: start: 20110915
  2. LIRAGLUTIDE FLEXPEN [Suspect]
     Dosage: 0.6 mg, qd
     Route: 058
     Dates: start: 20110922
  3. LIRAGLUTIDE FLEXPEN [Suspect]
     Dosage: 0.9 mg, qd
     Route: 058
     Dates: start: 20110929, end: 20120531
  4. OLMESARTAN MEDOXOMIL [Concomitant]
  5. ROSUVASTATIN CALCIUM [Concomitant]

REACTIONS (1)
  - Gastric cancer [Recovering/Resolving]
